FAERS Safety Report 7555200-9 (Version None)
Quarter: 2011Q2

REPORT INFORMATION
  Report Type: 
  Country: None (occurrence: None)
  Receive Date: 20110617
  Receipt Date: 20110608
  Transmission Date: 20111010
  Serious: Yes (Other)
  Sender: FDA-Public Use
  Company Number: PHHY2011BR22472

PATIENT
  Sex: Male

DRUGS (1)
  1. EXELON [Suspect]
     Indication: DEMENTIA ALZHEIMER'S TYPE
     Route: 062

REACTIONS (6)
  - DYSPHONIA [None]
  - MUSCULAR WEAKNESS [None]
  - PARKINSON'S DISEASE [None]
  - TREMOR [None]
  - SCIATIC NERVE INJURY [None]
  - MEMORY IMPAIRMENT [None]
